FAERS Safety Report 12180442 (Version 1)
Quarter: 2016Q1

REPORT INFORMATION
  Report Type: Spontaneous
  Country: US (occurrence: US)
  Receive Date: 20160315
  Receipt Date: 20160315
  Transmission Date: 20160526
  Serious: Yes (Death, Hospitalization)
  Sender: FDA-Public Use
  Company Number: US-PFIZER INC-2016136123

PATIENT
  Age: 49 Year
  Sex: Male

DRUGS (1)
  1. CORTISONE ACETATE. [Suspect]
     Active Substance: CORTISONE ACETATE
     Dosage: 1.7
     Route: 030
     Dates: start: 19501110, end: 19501124

REACTIONS (2)
  - Gastroduodenal ulcer [Fatal]
  - Gastrointestinal haemorrhage [Fatal]
